FAERS Safety Report 12693445 (Version 1)
Quarter: 2016Q3

REPORT INFORMATION
  Report Type: Spontaneous
  Country: DK (occurrence: DK)
  Receive Date: 20160829
  Receipt Date: 20160829
  Transmission Date: 20161109
  Serious: Yes (Hospitalization)
  Sender: FDA-Public Use
  Company Number: DK-GLAXOSMITHKLINE-DK2016122501

PATIENT
  Age: 14 Year
  Sex: Female
  Weight: 54 kg

DRUGS (4)
  1. FRISIUM [Concomitant]
     Active Substance: CLOBAZAM
     Indication: EPILEPSY
     Dosage: UNK
     Route: 065
     Dates: start: 20160717
  2. KEPPRA [Concomitant]
     Active Substance: LEVETIRACETAM
     Indication: ADVERSE DRUG REACTION
     Dosage: UNK
     Route: 065
     Dates: start: 20160427, end: 20160821
  3. KEPPRA [Concomitant]
     Active Substance: LEVETIRACETAM
     Indication: EPILEPSY
  4. LAMICTAL [Suspect]
     Active Substance: LAMOTRIGINE
     Indication: EPILEPSY
     Dosage: UNK
     Route: 048
     Dates: start: 20160706

REACTIONS (1)
  - Erythema [Recovering/Resolving]

NARRATIVE: CASE EVENT DATE: 201607
